FAERS Safety Report 17635595 (Version 1)
Quarter: 2020Q2

REPORT INFORMATION
  Report Type: Spontaneous
  Country: NL (occurrence: NL)
  Receive Date: 20200406
  Receipt Date: 20200406
  Transmission Date: 20200713
  Serious: No
  Sender: FDA-Public Use
  Company Number: NL-009507513-2004NLD001203

PATIENT
  Age: 74 Year
  Sex: Female

DRUGS (1)
  1. ELOCON [Suspect]
     Active Substance: MOMETASONE FUROATE

REACTIONS (3)
  - Incorrect route of product administration [Unknown]
  - Accidental exposure to product [Unknown]
  - Hordeolum [Unknown]
